FAERS Safety Report 11273170 (Version 3)
Quarter: 2015Q3

REPORT INFORMATION
  Report Type: Spontaneous
  Country: CH (occurrence: CH)
  Receive Date: 20150715
  Receipt Date: 20150916
  Transmission Date: 20151125
  Serious: Yes (Other)
  Sender: FDA-Public Use
  Company Number: CH-PFIZER INC-2015226429

PATIENT
  Age: 46 Year
  Sex: Female

DRUGS (11)
  1. MICROGYNON [Concomitant]
     Active Substance: ETHINYL ESTRADIOL\LEVONORGESTREL ACETATE
     Dosage: UNK
     Route: 048
  2. LYRICA [Suspect]
     Active Substance: PREGABALIN
     Indication: ANXIETY DISORDER
     Dosage: 25 MG, 1X/DAY
     Route: 048
     Dates: start: 20150512, end: 20150512
  3. VALTREX [Concomitant]
     Active Substance: VALACYCLOVIR HYDROCHLORIDE
     Dosage: UNK
  4. GILENYA [Concomitant]
     Active Substance: FINGOLIMOD HYDROCHLORIDE
     Indication: MULTIPLE SCLEROSIS
     Dosage: 0.5 MG, 1X/DAY
     Route: 048
     Dates: start: 20120419
  5. RIVOTRIL [Concomitant]
     Active Substance: CLONAZEPAM
     Dosage: 0.5 MG, 1X/DAY AS RESERVE MEDICATION
     Route: 048
  6. LYRICA [Suspect]
     Active Substance: PREGABALIN
     Dosage: 50 MG, 3X/DAY
     Route: 048
     Dates: start: 20150517, end: 20150517
  7. RITALINE [Concomitant]
     Active Substance: METHYLPHENIDATE HYDROCHLORIDE
     Indication: ATTENTION DEFICIT/HYPERACTIVITY DISORDER
     Dosage: 10 MG, 5X/DAY
  8. LYRICA [Suspect]
     Active Substance: PREGABALIN
     Dosage: 25 MG, 6X/DAY, EVERY 4 HRS
     Route: 048
     Dates: start: 20150518, end: 20150520
  9. LYRICA [Suspect]
     Active Substance: PREGABALIN
     Indication: NEURALGIA
     Dosage: 25 MG, 3X/DAY
     Route: 048
     Dates: start: 20150513, end: 20150516
  10. EFFEXOR [Concomitant]
     Active Substance: VENLAFAXINE HYDROCHLORIDE
     Indication: DEPRESSION
     Dosage: 150 MG, 1X/DAY
     Route: 048
  11. TRITTICO [Concomitant]
     Active Substance: TRAZODONE HYDROCHLORIDE
     Dosage: 2 DF, 1X/DAY
     Route: 048

REACTIONS (6)
  - Multiple sclerosis relapse [Unknown]
  - Hypoacusis [Recovered/Resolved]
  - Tinnitus [Recovered/Resolved]
  - Disease progression [Unknown]
  - Condition aggravated [Unknown]
  - Ataxia [Unknown]

NARRATIVE: CASE EVENT DATE: 20150518
